FAERS Safety Report 16916453 (Version 5)
Quarter: 2020Q1

REPORT INFORMATION
  Report Type: Report from Study
  Country: US (occurrence: US)
  Receive Date: 20191014
  Receipt Date: 20200325
  Transmission Date: 20200409
  Serious: Yes (Other)
  Sender: FDA-Public Use
  Company Number: US-B.I. PHARMACEUTICALS,INC./RIDGEFIELD-2019-US-106055

PATIENT
  Age: 44 Year
  Sex: Female

DRUGS (1)
  1. OFEV [Suspect]
     Active Substance: NINTEDANIB
     Indication: IDIOPATHIC PULMONARY FIBROSIS
     Dosage: COUPLE HOURS APART
     Route: 048
     Dates: start: 201805

REACTIONS (17)
  - Asthenia [Recovering/Resolving]
  - Emotional disorder [Unknown]
  - Fatigue [Unknown]
  - Decreased activity [Unknown]
  - Sjogren^s syndrome [Unknown]
  - Idiopathic pulmonary fibrosis [Unknown]
  - Hepatic enzyme increased [Unknown]
  - Nightmare [Unknown]
  - Dyspnoea exertional [Unknown]
  - Malaise [Recovered/Resolved]
  - Inappropriate schedule of product administration [Recovered/Resolved]
  - Joint swelling [Unknown]
  - Nausea [Unknown]
  - Musculoskeletal discomfort [Unknown]
  - Weight increased [Unknown]
  - Diarrhoea [Unknown]
  - Anxiety [Not Recovered/Not Resolved]

NARRATIVE: CASE EVENT DATE: 201908
